FAERS Safety Report 21654482 (Version 1)
Quarter: 2022Q4

REPORT INFORMATION
  Report Type: Report from Study
  Country: US (occurrence: US)
  Receive Date: 20221129
  Receipt Date: 20221129
  Transmission Date: 20230113
  Serious: No
  Sender: FDA-Public Use
  Company Number: US-ABBVIE-4182736

PATIENT
  Sex: Female

DRUGS (5)
  1. RINVOQ [Suspect]
     Active Substance: UPADACITINIB
     Indication: Rheumatoid arthritis
     Dosage: FORM STRENGTH : 15 MG
     Route: 048
     Dates: start: 20220713
  2. LEFLUNOMIDE [Concomitant]
     Active Substance: LEFLUNOMIDE
     Indication: Product used for unknown indication
     Dosage: 10 MG
     Route: 048
  3. MELOXICAM [Concomitant]
     Active Substance: MELOXICAM
     Indication: Product used for unknown indication
     Dosage: 15 MG
     Route: 048
  4. Hydroxychloroquin Tab 200MG [Concomitant]
     Indication: Product used for unknown indication
     Dosage: 200 MG
     Route: 048
  5. Triamcinolon Oinment 0.1% [Concomitant]
     Indication: Product used for unknown indication

REACTIONS (4)
  - Fatigue [Unknown]
  - Neutrophil count decreased [Unknown]
  - Drug ineffective [Unknown]
  - Infection [Unknown]

NARRATIVE: CASE EVENT DATE: 20220101
